FAERS Safety Report 6418744-9 (Version None)
Quarter: 2009Q4

REPORT INFORMATION
  Report Type: 
  Country: None (occurrence: None)
  Receive Date: 20091026
  Receipt Date: 20091014
  Transmission Date: 20100525
  Serious: Yes (Hospitalization, Other)
  Sender: FDA-Public Use
  Company Number: 2009AC000253

PATIENT
  Age: 76 Year
  Sex: Male
  Weight: 6.804 kg

DRUGS (34)
  1. DIGOXIN [Suspect]
     Dosage: .25 MG; QD; PO
     Route: 048
     Dates: start: 19961001, end: 20080530
  2. CAPTOPRIL [Concomitant]
  3. RAMIPRIL [Concomitant]
  4. METOPROLOL [Concomitant]
  5. AMIODARONE [Concomitant]
  6. COREG [Concomitant]
  7. ACIDOPHILUS [Concomitant]
  8. VITAMIN [Concomitant]
  9. COENZYME Q10 [Concomitant]
  10. MAGNESIUM [Concomitant]
  11. ASCORBIC ACID [Concomitant]
  12. ALCARNITINE [Concomitant]
  13. FLAX SEED OIL [Concomitant]
  14. AMINO ACID POWDER [Concomitant]
  15. TOBRAMYCIN OPTHALMIC SOLUTION [Concomitant]
  16. TOBRADEX OPTHALMIC SUSPENSION [Concomitant]
  17. MAVIK [Concomitant]
  18. CHEMET [Concomitant]
  19. FUROSEMIDE [Concomitant]
  20. E-MYCIN [Concomitant]
  21. L-CARNITINE [Concomitant]
  22. CO-Q-10 [Concomitant]
  23. MONOPRIL [Concomitant]
  24. TENORMIN [Concomitant]
  25. COUMADIN [Concomitant]
  26. TOPROL-XL [Concomitant]
  27. ALDACTONE [Concomitant]
  28. SPIRONOLACTONE [Concomitant]
  29. VICODIN [Concomitant]
  30. MULTI-VITAMIN [Concomitant]
  31. RAMIPRIL [Concomitant]
  32. METOPROLOL [Concomitant]
  33. AMIODARONE [Concomitant]
  34. COENZYME Q10 [Concomitant]

REACTIONS (20)
  - AORTIC ARTERIOSCLEROSIS [None]
  - ARTHRALGIA [None]
  - ASTHENIA [None]
  - ATRIAL FIBRILLATION [None]
  - BACK PAIN [None]
  - CARDIAC FAILURE CHRONIC [None]
  - DIZZINESS [None]
  - DRUG INTERACTION [None]
  - ECONOMIC PROBLEM [None]
  - EJECTION FRACTION DECREASED [None]
  - ESSENTIAL HYPERTENSION [None]
  - FATIGUE [None]
  - GAIT DISTURBANCE [None]
  - INJURY [None]
  - MITRAL VALVE INCOMPETENCE [None]
  - MITRAL VALVE PROLAPSE [None]
  - PANCYTOPENIA [None]
  - PULMONARY ARTERIAL HYPERTENSION [None]
  - SENSORY LOSS [None]
  - TRICUSPID VALVE INCOMPETENCE [None]
